FAERS Safety Report 7889168-2 (Version None)
Quarter: 2011Q4

REPORT INFORMATION
  Report Type: 
  Country: None (occurrence: None)
  Receive Date: 20111103
  Receipt Date: 20111027
  Transmission Date: 20120403
  Serious: Yes (Hospitalization)
  Sender: FDA-Public Use
  Company Number: DK-PFIZER INC-2011262171

PATIENT
  Age: 68 Year
  Sex: Male

DRUGS (1)
  1. SUNITINIB MALATE [Suspect]
     Indication: METASTATIC RENAL CELL CARCINOMA
     Dosage: 37.5 MG, 1X/DAY IN 23 DAYS AN THEN PAUSE IN 22 DAYS
     Route: 048
     Dates: start: 20091216, end: 20100816

REACTIONS (5)
  - ANAEMIA [None]
  - THROMBOCYTOPENIA [None]
  - EPISTAXIS [None]
  - FEBRILE NEUTROPENIA [None]
  - HYPOTENSION [None]
